FAERS Safety Report 5136983-4 (Version None)
Quarter: 2006Q4

REPORT INFORMATION
  Report Type: 
  Country: None (occurrence: None)
  Receive Date: 20061030
  Receipt Date: 20060914
  Transmission Date: 20070319
  Serious: No
  Sender: FDA-Public Use
  Company Number: GB-ELI_LILLY_AND_COMPANY-GB200609003024

PATIENT
  Age: 53 Year
  Sex: Male

DRUGS (2)
  1. ZYPREXA [Suspect]
     Indication: BIPOLAR DISORDER
     Dosage: 10 MG, DAILY (1/D)
     Route: 048
     Dates: start: 20030101
  2. VALPROATE SODIUM [Concomitant]
     Indication: BIPOLAR DISORDER
     Dosage: 600 MG, 2/D

REACTIONS (5)
  - BLOOD DISORDER [None]
  - EOSINOPHIL COUNT INCREASED [None]
  - LEUKOCYTOSIS [None]
  - NEUTROPHIL COUNT INCREASED [None]
  - WHITE BLOOD CELL COUNT INCREASED [None]
